FAERS Safety Report 18420004 (Version 1)
Quarter: 2020Q4

REPORT INFORMATION
  Report Type: Spontaneous
  Country: CA (occurrence: CA)
  Receive Date: 20201023
  Receipt Date: 20201023
  Transmission Date: 20210114
  Serious: Yes (Death)
  Sender: FDA-Public Use
  Company Number: CA-PFIZER INC-2020300531

PATIENT
  Age: 61 Year
  Sex: Male

DRUGS (10)
  1. SUTENT [Suspect]
     Active Substance: SUNITINIB MALATE
     Dosage: 50 MG, 1X/DAY FOR 4 WEEKS (FOR 28 DAYS)
     Route: 048
     Dates: start: 20200810, end: 2020
  2. STATEX [SIMVASTATIN] [Concomitant]
     Dosage: 5 MG
  3. PREGABALIN. [Concomitant]
     Active Substance: PREGABALIN
     Dosage: 75 MG
  4. OXAZEPAM. [Concomitant]
     Active Substance: OXAZEPAM
     Dosage: 30 MG
  5. JANUMET [Concomitant]
     Active Substance: METFORMIN HYDROCHLORIDE\SITAGLIPTIN PHOSPHATE
     Dosage: UNK (50/1000 MG)
  6. MORPHINE [Concomitant]
     Active Substance: MORPHINE
     Dosage: 15 MG
  7. FENTANYL. [Concomitant]
     Active Substance: FENTANYL
     Dosage: 25 UG (MCG)
  8. OXYCOCET [Concomitant]
     Active Substance: ACETAMINOPHEN\OXYCODONE HYDROCHLORIDE
     Dosage: UNK (5/325 MG)
  9. DOCUSATE [Concomitant]
     Active Substance: DOCUSATE
     Dosage: 100 MG
  10. ONDANSETRON [Concomitant]
     Active Substance: ONDANSETRON
     Dosage: 8 MG

REACTIONS (4)
  - Death [Fatal]
  - Asthenia [Unknown]
  - Hyperglycaemia [Unknown]
  - Fatigue [Unknown]

NARRATIVE: CASE EVENT DATE: 2020
